FAERS Safety Report 11219873 (Version 2)
Quarter: 2015Q3

REPORT INFORMATION
  Report Type: Spontaneous
  Country: GB (occurrence: GB)
  Receive Date: 20150625
  Receipt Date: 20150826
  Transmission Date: 20151125
  Serious: Yes (Other)
  Sender: FDA-Public Use
  Company Number: GB-JNJFOC-20150614418

PATIENT
  Age: 55 Year
  Sex: Female
  Weight: 65 kg

DRUGS (7)
  1. INFLIXIMAB, RECOMBINANT [Suspect]
     Active Substance: INFLIXIMAB
     Indication: COLITIS ULCERATIVE
     Dosage: DOSE : 5 (UNITS UNSPECIFIED)
     Route: 042
     Dates: start: 20150313, end: 20150428
  2. PENTASA [Concomitant]
     Active Substance: MESALAMINE
     Dosage: DOSE: 1 (UNITS UNSPECIFIED)
     Route: 065
  3. SALOFALK [Concomitant]
     Active Substance: MESALAMINE
     Route: 065
  4. QVAR [Concomitant]
     Active Substance: BECLOMETHASONE DIPROPIONATE
     Dosage: DOSE: 200 (UNITS UNSPECIFIED)??STRENGTH:100 MICROGRAM
     Route: 055
  5. BUSCOPAN [Concomitant]
     Active Substance: BUTYLSCOPOLAMINE BROMIDE
     Dosage: DOSE: 1 (UNITS UNSPECIFIED)
     Route: 065
  6. MESALAZINE [Concomitant]
     Active Substance: MESALAMINE
     Dosage: DOSE: 4 (UNITS UNSPECIFIED)
     Route: 065
  7. MERCAPTOPURINE. [Suspect]
     Active Substance: MERCAPTOPURINE
     Indication: COLITIS ULCERATIVE
     Dosage: DOSE: 1 (UNITS UNSPECIFIED)
     Route: 048
     Dates: start: 20150511, end: 20150515

REACTIONS (8)
  - Infusion related reaction [Not Recovered/Not Resolved]
  - Nausea [Not Recovered/Not Resolved]
  - Tinnitus [Not Recovered/Not Resolved]
  - Dyspnoea [Not Recovered/Not Resolved]
  - Blood pressure diastolic increased [Not Recovered/Not Resolved]
  - Dizziness [Not Recovered/Not Resolved]
  - Vertigo [Not Recovered/Not Resolved]
  - Hypersensitivity [Not Recovered/Not Resolved]

NARRATIVE: CASE EVENT DATE: 2015
